FAERS Safety Report 7481746-8 (Version None)
Quarter: 2011Q2

REPORT INFORMATION
  Report Type: 
  Country: None (occurrence: None)
  Receive Date: 20110516
  Receipt Date: 20110506
  Transmission Date: 20111010
  Serious: Yes (Hospitalization)
  Sender: FDA-Public Use
  Company Number: B0706063A

PATIENT
  Age: 48 Year
  Sex: Female

DRUGS (3)
  1. CELSENTRI [Suspect]
     Indication: HIV INFECTION
     Dosage: 300MG PER DAY
     Route: 048
     Dates: start: 20101213, end: 20110310
  2. ISENTRESS [Suspect]
     Indication: HIV INFECTION
     Dosage: 800MG PER DAY
     Route: 048
     Dates: start: 20101213, end: 20110310
  3. INTELENCE [Suspect]
     Indication: HIV INFECTION
     Dosage: 400MG PER DAY
     Route: 048
     Dates: start: 20101213, end: 20110310

REACTIONS (6)
  - JAUNDICE [None]
  - VOMITING [None]
  - HEPATITIS ACUTE [None]
  - ABDOMINAL PAIN UPPER [None]
  - FEELING HOT [None]
  - PROTHROMBIN LEVEL DECREASED [None]
